FAERS Safety Report 9443925 (Version 1)
Quarter: 2013Q3

REPORT INFORMATION
  Report Type: Spontaneous
  Country: US (occurrence: US)
  Receive Date: 20130807
  Receipt Date: 20130807
  Transmission Date: 20140515
  Serious: Yes (Other)
  Sender: FDA-Public Use
  Company Number: US-AMGEN-USASP2013053801

PATIENT
  Age: 77 Year
  Sex: Female
  Weight: 43.18 kg

DRUGS (10)
  1. PROLIA [Suspect]
     Indication: PRODUCT USED FOR UNKNOWN INDICATION
     Dosage: UNK
     Route: 065
  2. LOSARTAN [Concomitant]
  3. METOPROLOL [Concomitant]
  4. HYDROCHLOROTHIAZIDE [Concomitant]
  5. HYDROCODONE [Concomitant]
     Dosage: UNK UNK, TID
  6. LIDOCAINE JELLY [Concomitant]
     Indication: PAIN
  7. CALCIUM [Concomitant]
     Dosage: 1200 MG, UNK
  8. VITAMIN D3 [Concomitant]
     Dosage: 2000 MG, UNK
  9. POTASSIUM [Concomitant]
     Dosage: 20 MEQ, TID
  10. CALCITONIN [Concomitant]
     Dates: start: 20130701

REACTIONS (8)
  - Pelvic fracture [Unknown]
  - Rib fracture [Unknown]
  - Pelvic neoplasm [Unknown]
  - Fracture [Unknown]
  - Spinal fracture [Unknown]
  - Body height decreased [Unknown]
  - Bone disorder [Unknown]
  - Mobility decreased [Recovered/Resolved]
